FAERS Safety Report 7626743-4 (Version None)
Quarter: 2011Q3

REPORT INFORMATION
  Report Type: 
  Country: None (occurrence: None)
  Receive Date: 20110721
  Receipt Date: 20110708
  Transmission Date: 20111222
  Serious: Yes (Hospitalization)
  Sender: FDA-Public Use
  Company Number: FR-ELI_LILLY_AND_COMPANY-FR201107002136

PATIENT
  Sex: Male

DRUGS (5)
  1. ZYPREXA [Suspect]
     Indication: SCHIZOPHRENIA
     Dosage: 20 MG, UNK
     Route: 048
     Dates: start: 20101027, end: 20101113
  2. ATORVASTATIN CALCIUM [Concomitant]
     Indication: DYSLIPIDAEMIA
     Dosage: 20 MG, QD
     Route: 048
  3. OLANZAPINE [Suspect]
     Indication: SCHIZOPHRENIA
     Dosage: 300 MG, EVERY 14 DAYS
     Route: 030
     Dates: start: 20101230, end: 20110401
  4. ZYPREXA [Suspect]
     Dosage: 30 MG, UNK
     Route: 048
     Dates: start: 20101113, end: 20101230
  5. OLANZAPINE [Suspect]
     Dosage: 405 MG, EVERY 28 DAYS
     Route: 030
     Dates: start: 20110401

REACTIONS (5)
  - OVERDOSE [None]
  - WEIGHT INCREASED [None]
  - CONDITION AGGRAVATED [None]
  - HYPERCHOLESTEROLAEMIA [None]
  - BLOOD TRIGLYCERIDES INCREASED [None]
